FAERS Safety Report 9719664 (Version 1)
Quarter: 2013Q4

REPORT INFORMATION
  Report Type: Spontaneous
  Country: US (occurrence: US)
  Receive Date: 20131128
  Receipt Date: 20131128
  Transmission Date: 20140711
  Serious: Yes (Other)
  Sender: FDA-Public Use
  Company Number: US-AMGEN-USASP2013082391

PATIENT
  Sex: Female

DRUGS (2)
  1. ARANESP [Suspect]
     Indication: ANAEMIA
     Dosage: 2.25 MUG/KG, Q2WK
     Route: 065
     Dates: start: 201307
  2. CARBOPLATIN [Concomitant]
     Dosage: UNK UNK, QWK
     Route: 065

REACTIONS (3)
  - Pancytopenia [Unknown]
  - Haemoglobin decreased [Unknown]
  - Platelet count abnormal [Unknown]
